FAERS Safety Report 23539661 (Version 1)
Quarter: 2024Q1

REPORT INFORMATION
  Report Type: Spontaneous
  Country: GB (occurrence: GB)
  Receive Date: 20240219
  Receipt Date: 20240219
  Transmission Date: 20240410
  Serious: Yes (Other)
  Sender: FDA-Public Use
  Company Number: None

PATIENT
  Age: 21 Year
  Sex: Male
  Weight: 50 kg

DRUGS (1)
  1. CITALOPRAM [Suspect]
     Active Substance: CITALOPRAM HYDROBROMIDE
     Indication: Depressed mood
     Dosage: 20
     Route: 048
     Dates: start: 20240213, end: 20240214

REACTIONS (13)
  - Tongue discomfort [Recovered/Resolved]
  - Burning sensation [Recovered/Resolved]
  - Dry mouth [Recovering/Resolving]
  - Fatigue [Unknown]
  - Hyperhidrosis [Unknown]
  - Anger [Recovered/Resolved]
  - Headache [Recovering/Resolving]
  - Restlessness [Recovered/Resolved]
  - Disturbance in attention [Unknown]
  - Micturition urgency [Unknown]
  - Depressed mood [Recovered/Resolved]
  - Restless legs syndrome [Recovering/Resolving]
  - Suicidal ideation [Recovered/Resolved]

NARRATIVE: CASE EVENT DATE: 20240213
